FAERS Safety Report 4632924-4 (Version None)
Quarter: 2005Q2

REPORT INFORMATION
  Report Type: 
  Country: None (occurrence: None)
  Receive Date: 20050412
  Receipt Date: 20050329
  Transmission Date: 20051028
  Serious: Yes (Hospitalization)
  Sender: FDA-Public Use
  Company Number: FR-JNJFOC-20050400342

PATIENT
  Age: 72 Year
  Sex: Male
  Weight: 77 kg

DRUGS (12)
  1. ARESTAL [Suspect]
     Route: 049
  2. ARESTAL [Suspect]
     Indication: GASTROINTESTINAL DISORDER
     Route: 049
  3. TRIFLUCAN [Interacting]
     Indication: DRUG USE FOR UNKNOWN INDICATION
  4. PRIMPERAN TAB [Concomitant]
     Indication: GASTROINTESTINAL DISORDER
  5. ZYLORIC [Concomitant]
  6. OFLOCET [Concomitant]
  7. NEORAL [Concomitant]
  8. MOPRAL [Concomitant]
  9. EUPRESSYL [Concomitant]
  10. ATENOLOL [Concomitant]
  11. APROVEL [Concomitant]
  12. AMLOR [Concomitant]

REACTIONS (10)
  - CONFUSIONAL STATE [None]
  - DEPRESSED LEVEL OF CONSCIOUSNESS [None]
  - DRUG INTERACTION [None]
  - INTERSTITIAL LUNG DISEASE [None]
  - MIOSIS [None]
  - PYREXIA [None]
  - RENAL FAILURE ACUTE [None]
  - SOMNOLENCE [None]
  - SYSTEMIC CANDIDA [None]
  - TREMOR [None]
